FAERS Safety Report 7419910-6 (Version None)
Quarter: 2011Q2

REPORT INFORMATION
  Report Type: 
  Country: None (occurrence: None)
  Receive Date: 20110413
  Receipt Date: 20110413
  Transmission Date: 20111010
  Serious: Yes (Hospitalization)
  Sender: FDA-Public Use
  Company Number: None

PATIENT
  Age: 85 Year
  Sex: Female
  Weight: 58 kg

DRUGS (11)
  1. ISOSORBIDE MONONITRATE [Concomitant]
  2. SENOKOT [Concomitant]
  3. M.V.I. [Concomitant]
  4. FERROUS SULFATE TAB [Concomitant]
  5. COUMADIN [Suspect]
     Indication: PROPHYLAXIS
     Dosage: 1.5MG DAILY PO RECENT
     Route: 048
  6. COUMADIN [Suspect]
     Indication: HIP FRACTURE
     Dosage: 1.5MG DAILY PO RECENT
     Route: 048
  7. MIRALAX [Concomitant]
  8. CA W/VIT D [Concomitant]
  9. COREG [Concomitant]
  10. TYLENOL (CAPLET) [Concomitant]
  11. ULTRAM [Concomitant]

REACTIONS (2)
  - INTERNATIONAL NORMALISED RATIO INCREASED [None]
  - GASTROINTESTINAL HAEMORRHAGE [None]
